FAERS Safety Report 4313092-5 (Version None)
Quarter: 2004Q1

REPORT INFORMATION
  Report Type: 
  Country: None (occurrence: None)
  Receive Date: 20040303
  Receipt Date: 20010627
  Transmission Date: 20041129
  Serious: Yes (Other)
  Sender: FDA-Public Use
  Company Number: US-JNJFOC-20031104527

PATIENT
  Age: 74 Year
  Sex: Male

DRUGS (32)
  1. INFLIXIMAB (INFLIXIMAB, RECOMBINANT) LYOPHILIZED POWDER [Suspect]
     Indication: RHEUMATOID ARTHRITIS
     Dosage: 10 MG/KG/ INTRAVENOUS
     Route: 042
     Dates: start: 19971210
  2. INFLIXIMAB (INFLIXIMAB, RECOMBINANT) LYOPHILIZED POWDER [Suspect]
     Indication: RHEUMATOID ARTHRITIS
     Dosage: 10 MG/KG/ INTRAVENOUS
     Route: 042
     Dates: start: 19971231
  3. INFLIXIMAB (INFLIXIMAB, RECOMBINANT) LYOPHILIZED POWDER [Suspect]
     Indication: RHEUMATOID ARTHRITIS
     Dosage: 10 MG/KG/ INTRAVENOUS
     Route: 042
     Dates: start: 19980123
  4. INFLIXIMAB (INFLIXIMAB, RECOMBINANT) LYOPHILIZED POWDER [Suspect]
     Indication: RHEUMATOID ARTHRITIS
     Dosage: 10 MG/KG/ INTRAVENOUS
     Route: 042
     Dates: start: 19980320
  5. INFLIXIMAB (INFLIXIMAB, RECOMBINANT) LYOPHILIZED POWDER [Suspect]
     Indication: RHEUMATOID ARTHRITIS
     Dosage: 10 MG/KG/ INTRAVENOUS
     Route: 042
     Dates: start: 19980515
  6. INFLIXIMAB (INFLIXIMAB, RECOMBINANT) LYOPHILIZED POWDER [Suspect]
     Indication: RHEUMATOID ARTHRITIS
     Dosage: 10 MG/KG/ INTRAVENOUS
     Route: 042
     Dates: start: 19980715
  7. INFLIXIMAB (INFLIXIMAB, RECOMBINANT) LYOPHILIZED POWDER [Suspect]
     Indication: RHEUMATOID ARTHRITIS
     Dosage: 10 MG/KG/ INTRAVENOUS
     Route: 042
     Dates: start: 19980916
  8. INFLIXIMAB (INFLIXIMAB, RECOMBINANT) LYOPHILIZED POWDER [Suspect]
     Indication: RHEUMATOID ARTHRITIS
     Dosage: 10 MG/KG/ INTRAVENOUS
     Route: 042
     Dates: start: 19981104
  9. INFLIXIMAB (INFLIXIMAB, RECOMBINANT) LYOPHILIZED POWDER [Suspect]
     Indication: RHEUMATOID ARTHRITIS
     Dosage: 10 MG/KG/ INTRAVENOUS
     Route: 042
     Dates: start: 19990106
  10. INFLIXIMAB (INFLIXIMAB, RECOMBINANT) LYOPHILIZED POWDER [Suspect]
     Indication: RHEUMATOID ARTHRITIS
     Dosage: 10 MG/KG/ INTRAVENOUS
     Route: 042
     Dates: start: 19990217
  11. INFLIXIMAB (INFLIXIMAB, RECOMBINANT) LYOPHILIZED POWDER [Suspect]
     Indication: RHEUMATOID ARTHRITIS
     Dosage: 10 MG/KG/ INTRAVENOUS
     Route: 042
     Dates: start: 19990407
  12. INFLIXIMAB (INFLIXIMAB, RECOMBINANT) LYOPHILIZED POWDER [Suspect]
     Indication: RHEUMATOID ARTHRITIS
     Dosage: 10 MG/KG/ INTRAVENOUS
     Route: 042
     Dates: start: 19990602
  13. INFLIXIMAB (INFLIXIMAB, RECOMBINANT) LYOPHILIZED POWDER [Suspect]
     Indication: RHEUMATOID ARTHRITIS
     Dosage: 10 MG/KG/ INTRAVENOUS
     Route: 042
     Dates: start: 19990728
  14. INFLIXIMAB (INFLIXIMAB, RECOMBINANT) LYOPHILIZED POWDER [Suspect]
     Indication: RHEUMATOID ARTHRITIS
     Dosage: 10 MG/KG/ INTRAVENOUS
     Route: 042
     Dates: start: 19990922
  15. INFLIXIMAB (INFLIXIMAB, RECOMBINANT) LYOPHILIZED POWDER [Suspect]
     Indication: RHEUMATOID ARTHRITIS
     Dosage: 10 MG/KG/ INTRAVENOUS
     Route: 042
     Dates: start: 19991123
  16. INFLIXIMAB (INFLIXIMAB, RECOMBNANT ) LYOPHILIZED POWDER [Suspect]
  17. INFLIXIMAB (INFLIXIMAB, RECOMBINANT) LYOPHILIZED POWDER [Suspect]
  18. PLACEBO (PLACEBO) LYOPHILIZED POWDER [Suspect]
     Indication: RHEUMATOID ARTHRITIS
     Dosage: INTRAVENOUS
     Route: 042
     Dates: start: 19980220
  19. PLACEBO (PLACEBO) LYOPHILIZED POWDER [Suspect]
     Indication: RHEUMATOID ARTHRITIS
     Dosage: INTRAVENOUS
     Route: 042
     Dates: start: 19980417
  20. PLACEBO (PLACEBO) LYOPHILIZED POWDER [Suspect]
     Indication: RHEUMATOID ARTHRITIS
     Dosage: INTRAVENOUS
     Route: 042
     Dates: start: 19980617
  21. PLACEBO (PLACEBO) LYOPHILIZED POWDER [Suspect]
     Indication: RHEUMATOID ARTHRITIS
     Dosage: INTRAVENOUS
     Route: 042
     Dates: start: 19980812
  22. PLACEBO (PLACEBO) LYOPHILIZED POWDER [Suspect]
     Indication: RHEUMATOID ARTHRITIS
     Dosage: INTRAVENOUS
     Route: 042
     Dates: start: 19981007
  23. PLACEBO (PLACEBO) LYOPHILIZED POWDER [Suspect]
     Indication: RHEUMATOID ARTHRITIS
     Dosage: INTRAVENOUS
     Route: 042
     Dates: start: 19981202
  24. PLACEBO (PLACEBO) LYOPHILIZED POWDER [Suspect]
     Indication: RHEUMATOID ARTHRITIS
     Dosage: INTRAVENOUS
     Route: 042
     Dates: start: 19990127
  25. PLACEBO (PLACEBO) LYOPHILIZED POWDER [Suspect]
     Indication: RHEUMATOID ARTHRITIS
     Dosage: INTRAVENOUS
     Route: 042
     Dates: start: 19990317
  26. PLACEBO (PLACEBO) LYOPHILIZED POWDER [Suspect]
     Indication: RHEUMATOID ARTHRITIS
     Dosage: INTRAVENOUS
     Route: 042
     Dates: start: 19990505
  27. PLACEBO (PLACEBO) LYOPHILIZED POWDER [Suspect]
     Indication: RHEUMATOID ARTHRITIS
     Dosage: INTRAVENOUS
     Route: 042
     Dates: start: 19990630
  28. PLACEBO (PLACEBO) LYOPHILIZED POWDER [Suspect]
     Indication: RHEUMATOID ARTHRITIS
     Dosage: INTRAVENOUS
     Route: 042
     Dates: start: 19990825
  29. PLACEBO (PLACEBO) LYOPHILIZED POWDER [Suspect]
     Indication: RHEUMATOID ARTHRITIS
     Dosage: INTRAVENOUS
     Route: 042
     Dates: start: 19991020
  30. METHOTREXATE [Concomitant]
  31. FOLIC ACID [Concomitant]
  32. MOTRIN [Concomitant]

REACTIONS (6)
  - ANISOCYTOSIS [None]
  - BONE MARROW DEPRESSION [None]
  - EOSINOPHIL COUNT INCREASED [None]
  - MANTLE CELL LYMPHOMA [None]
  - PLASMA CELLS INCREASED [None]
  - POIKILOCYTOSIS [None]
